FAERS Safety Report 18245960 (Version 1)
Quarter: 2020Q3

REPORT INFORMATION
  Report Type: Spontaneous
  Country: US (occurrence: US)
  Receive Date: 20200909
  Receipt Date: 20200909
  Transmission Date: 20201103
  Serious: No
  Sender: FDA-Public Use
  Company Number: US-ASTRAZENECA-2020SF09880

PATIENT
  Age: 906 Month
  Sex: Female
  Weight: 70.3 kg

DRUGS (1)
  1. BRILINTA [Suspect]
     Active Substance: TICAGRELOR
     Route: 048
     Dates: start: 202003, end: 20200821

REACTIONS (2)
  - Contusion [Unknown]
  - Blood viscosity abnormal [Unknown]

NARRATIVE: CASE EVENT DATE: 202003
